FAERS Safety Report 6516316-9 (Version None)
Quarter: 2009Q4

REPORT INFORMATION
  Report Type: 
  Country: None (occurrence: None)
  Receive Date: 20091223
  Receipt Date: 20091218
  Transmission Date: 20100525
  Serious: Yes (Hospitalization)
  Sender: FDA-Public Use
  Company Number: US-BRISTOL-MYERS SQUIBB COMPANY-14903967

PATIENT
  Age: 78 Year
  Sex: Male
  Weight: 84 kg

DRUGS (4)
  1. ERBITUX [Suspect]
     Indication: OESOPHAGEAL CARCINOMA
     Dosage: LAST DOSE ON 13OCT09
     Dates: start: 20090908
  2. TAXOL [Suspect]
     Indication: OESOPHAGEAL CARCINOMA
     Dosage: LAST DOSE ON 13OCT09
     Dates: start: 20090908
  3. CISPLATIN [Suspect]
     Indication: OESOPHAGEAL CARCINOMA
     Dosage: LAST DOSE ON 13OCT09
     Dates: start: 20090908
  4. RADIATION THERAPY [Suspect]
     Indication: OESOPHAGEAL CARCINOMA
     Dosage: LAST TREATMENT ON 16OCT09 1 DF= 52.68 GY NO OF FRACTIONS:28 NO OF ELAPSED DAYS: 39

REACTIONS (3)
  - DYSPHAGIA [None]
  - OESOPHAGEAL PAIN [None]
  - OESOPHAGITIS [None]
